FAERS Safety Report 9351728 (Version 2)
Quarter: 2013Q4

REPORT INFORMATION
  Report Type: Spontaneous
  Country: US (occurrence: US)
  Receive Date: 20130617
  Receipt Date: 20131211
  Transmission Date: 20140711
  Serious: Yes (Life-Threatening, Hospitalization)
  Sender: FDA-Public Use
  Company Number: US-JNJFOC-20130603918

PATIENT
  Age: 56 Year
  Sex: Female
  Weight: 83.2 kg

DRUGS (6)
  1. DIPHENHYDRAMINE HYDROCHLORIDE [Suspect]
     Indication: SUICIDE ATTEMPT
     Route: 065
  2. HYDROCODONE/APAP [Suspect]
     Indication: SUICIDE ATTEMPT
     Route: 065
  3. ATENOLOL/CHLORTHALIDONE [Suspect]
     Indication: SUICIDE ATTEMPT
     Route: 065
  4. CARISOPRODOL [Suspect]
     Indication: SUICIDE ATTEMPT
     Route: 065
  5. POTASSIUM [Suspect]
     Indication: SUICIDE ATTEMPT
     Route: 065
  6. FLUOXETINE [Concomitant]
     Indication: PRODUCT USED FOR UNKNOWN INDICATION
     Route: 065

REACTIONS (4)
  - Completed suicide [Recovered/Resolved]
  - Depressed level of consciousness [Recovered/Resolved]
  - Hypotension [Recovered/Resolved]
  - Coma [Recovered/Resolved]
